FAERS Safety Report 6510475-X (Version None)
Quarter: 2009Q4

REPORT INFORMATION
  Report Type: 
  Country: None (occurrence: None)
  Receive Date: 20091221
  Receipt Date: 20091221
  Transmission Date: 20100525
  Serious: No
  Sender: FDA-Public Use
  Company Number: None

PATIENT
  Age: 60 Year
  Sex: Female
  Weight: 60.3284 kg

DRUGS (1)
  1. HYDROCODONE BITARTRATE + ACETAMINOPHEN [Suspect]
     Indication: PAIN MANAGEMENT
     Dosage: ONE TO TWO Q 8 HOURS PO
     Route: 048
     Dates: start: 20090707, end: 20091214

REACTIONS (6)
  - EYE PRURITUS [None]
  - GLOSSITIS [None]
  - LIP SWELLING [None]
  - PRODUCT QUALITY ISSUE [None]
  - RASH [None]
  - STOMATITIS [None]
